FAERS Safety Report 5614718-6 (Version None)
Quarter: 2008Q1

REPORT INFORMATION
  Report Type: 
  Country: None (occurrence: None)
  Receive Date: 20080131
  Receipt Date: 20080117
  Transmission Date: 20080703
  Serious: Yes (Life-Threatening)
  Sender: FDA-Public Use
  Company Number: 8027056

PATIENT
  Sex: Male
  Weight: 20 kg

DRUGS (4)
  1. KEPPRA [Suspect]
     Dates: start: 20061016, end: 20061024
  2. KEPPRA [Suspect]
     Dosage: 375 MG /D
     Dates: start: 20061025, end: 20070109
  3. KEPPRA [Suspect]
     Dosage: 500 MG /D
     Dates: start: 20070110
  4. VALPROIC ACID [Concomitant]

REACTIONS (3)
  - AMAUROTIC FAMILIAL IDIOCY [None]
  - MYOCLONUS [None]
  - TIC [None]
